FAERS Safety Report 4522191-4 (Version None)
Quarter: 2004Q4

REPORT INFORMATION
  Report Type: 
  Country: None (occurrence: None)
  Receive Date: 20041207
  Receipt Date: 20041122
  Transmission Date: 20050328
  Serious: Yes (Hospitalization)
  Sender: FDA-Public Use
  Company Number: US014352

PATIENT
  Age: 25 Year
  Sex: Female

DRUGS (3)
  1. PROVIGIL [Suspect]
     Indication: FATIGUE
     Dates: start: 20040801
  2. PROVIGIL [Suspect]
     Indication: MULTIPLE SCLEROSIS
     Dates: start: 20040801
  3. INTERFERON [Suspect]

REACTIONS (4)
  - DEPRESSED LEVEL OF CONSCIOUSNESS [None]
  - DRUG INTERACTION [None]
  - PYREXIA [None]
  - VISUAL DISTURBANCE [None]
